FAERS Safety Report 9107007 (Version 2)
Quarter: 2013Q1

REPORT INFORMATION
  Report Type: Spontaneous
  Country: US (occurrence: US)
  Receive Date: 20130221
  Receipt Date: 20130318
  Transmission Date: 20140127
  Serious: Yes (Death)
  Sender: FDA-Public Use
  Company Number: US-ELI_LILLY_AND_COMPANY-US201302004243

PATIENT
  Sex: Female
  Weight: 146.5 kg

DRUGS (8)
  1. HUMATROPE [Suspect]
     Indication: GROWTH HORMONE DEFICIENCY
     Dosage: 0.3 MG, QD
     Route: 058
     Dates: start: 1970
  2. PROTONIX [Concomitant]
  3. KEPPRA [Concomitant]
  4. SYNTHROID [Concomitant]
  5. LYRICA [Concomitant]
  6. LISINOPRIL HYDROCHLORTHIAZID [Concomitant]
  7. ATIVAN [Concomitant]
  8. CORTEF [Concomitant]

REACTIONS (1)
  - Glioblastoma multiforme [Fatal]
